FAERS Safety Report 18053830 (Version 1)
Quarter: 2020Q3

REPORT INFORMATION
  Report Type: Report from Study
  Country: IT (occurrence: IT)
  Receive Date: 20200722
  Receipt Date: 20200722
  Transmission Date: 20201103
  Serious: Yes (Hospitalization)
  Sender: FDA-Public Use
  Company Number: IT-ACCORD-191706

PATIENT
  Age: 48 Year
  Sex: Male

DRUGS (2)
  1. QUETIAPINE. [Suspect]
     Active Substance: QUETIAPINE
     Route: 048
     Dates: start: 20200415, end: 20200415
  2. LORAZEPAM. [Suspect]
     Active Substance: LORAZEPAM
     Route: 048
     Dates: start: 20200415, end: 20200415

REACTIONS (6)
  - Hypoxia [Unknown]
  - Increased bronchial secretion [Unknown]
  - Sopor [Unknown]
  - Drug abuse [Unknown]
  - Bronchospasm [Unknown]
  - Intentional self-injury [Unknown]

NARRATIVE: CASE EVENT DATE: 20200415
